FAERS Safety Report 8060373-8 (Version None)
Quarter: 2012Q1

REPORT INFORMATION
  Report Type: 
  Country: None (occurrence: None)
  Receive Date: 20120119
  Receipt Date: 20120119
  Transmission Date: 20120608
  Serious: Yes (Hospitalization)
  Sender: FDA-Public Use
  Company Number: None

PATIENT
  Age: 85 Year
  Sex: Male
  Weight: 63.4 kg

DRUGS (16)
  1. DOCUSATE [Concomitant]
  2. ASPIRIN [Suspect]
     Indication: CORONARY ARTERIAL STENT INSERTION
     Dosage: 325MG EOD PO CHRONIC
     Route: 048
  3. ASPIRIN [Suspect]
     Indication: CORONARY ANGIOPLASTY
     Dosage: 325MG EOD PO CHRONIC
     Route: 048
  4. ASPIRIN [Suspect]
     Indication: PERCUTANEOUS CORONARY INTERVENTION
     Dosage: 325MG EOD PO CHRONIC
     Route: 048
  5. CALCITRIOL [Concomitant]
  6. DILTIAZEM HCL [Concomitant]
  7. LEVOXYL [Concomitant]
  8. NITROGLYCERIN [Concomitant]
  9. CARVEDILOL [Concomitant]
  10. CLONIDINE [Concomitant]
  11. MOM [Concomitant]
  12. SAW PALMETTO [Concomitant]
  13. PROPYLENE GLYCOL [Concomitant]
  14. M.V.I. [Concomitant]
  15. LASIX [Concomitant]
  16. SIMVASTATIN [Concomitant]

REACTIONS (3)
  - UPPER GASTROINTESTINAL HAEMORRHAGE [None]
  - ANAEMIA [None]
  - GASTROINTESTINAL ARTERIOVENOUS MALFORMATION [None]
